FAERS Safety Report 23867513 (Version 1)
Quarter: 2024Q2

REPORT INFORMATION
  Report Type: Spontaneous
  Country: US (occurrence: US)
  Receive Date: 20240517
  Receipt Date: 20240517
  Transmission Date: 20240716
  Serious: No
  Sender: FDA-Public Use
  Company Number: US-PFIZER INC-202400085849

PATIENT
  Age: 41 Year
  Sex: Female
  Weight: 57.61 kg

DRUGS (4)
  1. ESTRING [Suspect]
     Active Substance: ESTRADIOL
     Indication: Vaginal dysplasia
     Dosage: UNK
  2. ESTRING [Suspect]
     Active Substance: ESTRADIOL
     Indication: Systemic lupus erythematosus
  3. ESTRING [Suspect]
     Active Substance: ESTRADIOL
     Indication: Renal transplant
  4. ESTRING [Suspect]
     Active Substance: ESTRADIOL
     Indication: Vaginal cancer

REACTIONS (1)
  - Off label use [Unknown]
